FAERS Safety Report 10188832 (Version 1)
Quarter: 2014Q2

REPORT INFORMATION
  Report Type: Spontaneous
  Country: US (occurrence: US)
  Receive Date: 20140522
  Receipt Date: 20140522
  Transmission Date: 20141212
  Serious: No
  Sender: FDA-Public Use
  Company Number: US-SA-2014SA024917

PATIENT
  Age: 63 Year
  Sex: Male

DRUGS (7)
  1. SOLOSTAR [Suspect]
     Indication: TYPE 2 DIABETES MELLITUS
     Dosage: STARTED FROM SEVERAL YEARS AGO
  2. LANTUS SOLOSTAR [Suspect]
     Indication: TYPE 2 DIABETES MELLITUS
     Dosage: TAKEN FROM SEVERAL YEARS AGO.?DOSE: 120 AM AND 140 PM
     Route: 058
  3. APIDRA SOLOSTAR [Concomitant]
     Indication: TYPE 2 DIABETES MELLITUS
     Dosage: DOSE: 3 TIMES BEFORE MEALS 45 U DOSE:45 UNIT(S)
  4. SOLOSTAR [Concomitant]
  5. METFORMIN [Concomitant]
  6. PLAVIX [Concomitant]
  7. ASPIRIN [Concomitant]

REACTIONS (2)
  - Injection site pain [Not Recovered/Not Resolved]
  - Drug administration error [Unknown]
